FAERS Safety Report 10688662 (Version 1)
Quarter: 2015Q1

REPORT INFORMATION
  Report Type: Spontaneous
  Country: US (occurrence: US)
  Receive Date: 20150102
  Receipt Date: 20150102
  Transmission Date: 20150720
  Serious: No
  Sender: FDA-Public Use
  Company Number: US-009507513-1412USA009132

PATIENT
  Sex: Female

DRUGS (1)
  1. CORRECTOL NOS [Suspect]
     Active Substance: BISACODYL OR DOCUSATE SODIUM
     Indication: PRODUCT USED FOR UNKNOWN INDICATION
     Dosage: UNK, ONCE
     Route: 048
     Dates: start: 20141125, end: 20141125

REACTIONS (3)
  - Gait disturbance [Unknown]
  - Muscle spasms [Unknown]
  - Retching [Unknown]

NARRATIVE: CASE EVENT DATE: 20141126
